FAERS Safety Report 13363163 (Version 1)
Quarter: 2017Q1

REPORT INFORMATION
  Report Type: Spontaneous
  Country: US (occurrence: US)
  Receive Date: 20170323
  Receipt Date: 20170323
  Transmission Date: 20170429
  Serious: No
  Sender: FDA-Public Use
  Company Number: US-009507513-1703USA009883

PATIENT
  Age: 79 Year
  Sex: Male

DRUGS (1)
  1. SINEMET [Suspect]
     Active Substance: CARBIDOPA\LEVODOPA
     Dosage: SINEMET 25/100MG TABLET AT 12 PM AND AT 5 PM

REACTIONS (3)
  - Feeling cold [Unknown]
  - Fatigue [Unknown]
  - Hypotension [Unknown]
